FAERS Safety Report 14884716 (Version 1)
Quarter: 2018Q2

REPORT INFORMATION
  Report Type: Report from Study
  Country: US (occurrence: US)
  Receive Date: 20180511
  Receipt Date: 20180511
  Transmission Date: 20180711
  Serious: Yes (Hospitalization, Other)
  Sender: FDA-Public Use
  Company Number: US-GILEAD-2018-0336964

PATIENT
  Age: 64 Year
  Sex: Female

DRUGS (1)
  1. TENOFOVIR DISOPROXIL FUMARATE. [Suspect]
     Active Substance: TENOFOVIR DISOPROXIL FUMARATE
     Indication: HEPATITIS B
     Dosage: 300 MG, QD
     Route: 048

REACTIONS (8)
  - Systemic lupus erythematosus [Unknown]
  - Sinusitis [Unknown]
  - Nasopharyngitis [Unknown]
  - Anaemia [Unknown]
  - Arthritis [Unknown]
  - Plasma cell myeloma [Unknown]
  - Hysterectomy [Unknown]
  - Bronchitis [Unknown]
